FAERS Safety Report 12125517 (Version 5)
Quarter: 2017Q2

REPORT INFORMATION
  Report Type: Report from Study
  Country: US (occurrence: US)
  Receive Date: 20160229
  Receipt Date: 20170620
  Transmission Date: 20170829
  Serious: Yes (Other)
  Sender: FDA-Public Use
  Company Number: US-AMGEN-USASL2016023750

PATIENT
  Age: 72 Year
  Sex: Female

DRUGS (2)
  1. ENBREL [Suspect]
     Active Substance: ETANERCEPT
     Indication: RHEUMATOID ARTHRITIS
     Dosage: 50 MG, QWK
     Route: 065
     Dates: end: 2016
  2. ENBREL [Suspect]
     Active Substance: ETANERCEPT
     Indication: PSORIASIS

REACTIONS (8)
  - Infection [Unknown]
  - Gastroenteritis viral [Unknown]
  - Weight decreased [Unknown]
  - Clostridial infection [Unknown]
  - Dehydration [Unknown]
  - Psoriasis [Unknown]
  - Eye infection [Unknown]
  - Eyelid infection [Recovered/Resolved]

NARRATIVE: CASE EVENT DATE: 201512
